FAERS Safety Report 4455408-5 (Version None)
Quarter: 2004Q3

REPORT INFORMATION
  Report Type: 
  Country: None (occurrence: None)
  Receive Date: 20040830
  Receipt Date: 20040604
  Transmission Date: 20050211
  Serious: No
  Sender: FDA-Public Use
  Company Number: 204836

PATIENT
  Age: 20 Year
  Sex: Male
  Weight: 111.1 kg

DRUGS (8)
  1. XOLAIR [Suspect]
     Indication: ASTHMA
     Dosage: 225 MG,Q2W,SUBCUTANEOUS
     Route: 058
     Dates: start: 20031209, end: 20040224
  2. IMMUNOTHERAPY (ALLERGENIC EXTRACTS) [Concomitant]
  3. SINGULAIR [Concomitant]
  4. ALBUTEROL (ALBUTEROL,ALBUTEROL SULFATE) [Concomitant]
  5. WELLBUTRIN [Concomitant]
  6. ADVAIR (SALMETEROL XINAFOATE, FLUTICASONE PROPIONATE) [Concomitant]
  7. COMBIVENT (ALBUTEROL, ALBUTEROL SULFATE, IPRATROPIUM BROMIDE) [Concomitant]
  8. ALLEGRA [Concomitant]

REACTIONS (3)
  - DYSPNOEA [None]
  - HYPERSENSITIVITY [None]
  - RASH PAPULAR [None]
